FAERS Safety Report 7177314-8 (Version None)
Quarter: 2010Q4

REPORT INFORMATION
  Report Type: 
  Country: None (occurrence: None)
  Receive Date: 20101220
  Receipt Date: 20101207
  Transmission Date: 20110411
  Serious: Yes (Hospitalization)
  Sender: FDA-Public Use
  Company Number: US-ELI_LILLY_AND_COMPANY-US201009002876

PATIENT
  Sex: Female

DRUGS (15)
  1. FORTEO [Suspect]
     Indication: OSTEOPOROSIS
     Dosage: 20 UG, DAILY (1/D)
     Dates: start: 20100601, end: 20100801
  2. FORTEO [Suspect]
     Dosage: 20 UG, DAILY (1/D)
     Dates: start: 20100831
  3. THEO-DUR [Concomitant]
     Dosage: UNK, UNKNOWN
     Route: 065
  4. SYNTHROID [Concomitant]
     Dosage: UNK, UNKNOWN
     Route: 065
  5. ZOCOR [Concomitant]
     Dosage: UNK, UNKNOWN
     Route: 065
  6. XANAX [Concomitant]
     Dosage: UNK, UNKNOWN
     Route: 065
  7. ESTRADIOL [Concomitant]
     Dosage: UNK, UNKNOWN
     Route: 065
  8. ISORBIDE [Concomitant]
     Dosage: UNK, UNKNOWN
     Route: 065
  9. TOPRAL [Concomitant]
     Dosage: UNK, UNKNOWN
     Route: 065
  10. LOPID [Concomitant]
     Dosage: UNK, UNKNOWN
     Route: 065
  11. PLAVIX [Concomitant]
     Dosage: UNK, UNKNOWN
     Route: 065
  12. GUAIFENESIN AND PSEUDOEPHEDRINE HYDROCHLORIDE [Concomitant]
     Indication: SINUS DISORDER
     Dosage: UNK, UNKNOWN
     Route: 065
  13. FLONASE [Concomitant]
     Dosage: UNK, UNKNOWN
     Route: 065
  14. VENTOLIN [Concomitant]
     Dosage: UNK, UNKNOWN
     Route: 065
  15. TYLENOL WITH CODEIN #4 [Concomitant]

REACTIONS (2)
  - PNEUMONIA [None]
  - RENAL NEOPLASM [None]
